FAERS Safety Report 7906036-8 (Version None)
Quarter: 2011Q4

REPORT INFORMATION
  Report Type: 
  Country: None (occurrence: None)
  Receive Date: 20111110
  Receipt Date: 20111105
  Transmission Date: 20120403
  Serious: Yes (Hospitalization)
  Sender: FDA-Public Use
  Company Number: CA-BRISTOL-MYERS SQUIBB COMPANY-16158537

PATIENT
  Age: 47 Year
  Sex: Male

DRUGS (4)
  1. BISACODYL [Concomitant]
     Dates: start: 20100101
  2. IPILIMUMAB [Suspect]
     Indication: MALIGNANT MELANOMA
     Dosage: LAST RECEIVED ON 30-SEP-2011
     Route: 042
     Dates: start: 20110112
  3. HYDROMORPHONE HCL [Concomitant]
     Dates: start: 20100101
  4. INSULIN [Concomitant]
     Dates: start: 20100101

REACTIONS (2)
  - GROIN PAIN [None]
  - ASTHENIA [None]
